FAERS Safety Report 8159038-3 (Version None)
Quarter: 2012Q1

REPORT INFORMATION
  Report Type: 
  Country: None (occurrence: None)
  Receive Date: 20120223
  Receipt Date: 20120220
  Transmission Date: 20120608
  Serious: Yes (Life-Threatening, Hospitalization)
  Sender: FDA-Public Use
  Company Number: RU-SANOFI-AVENTIS-2012SA004100

PATIENT
  Age: 56 Year
  Sex: Male
  Weight: 95 kg

DRUGS (5)
  1. PLAVIX [Suspect]
     Indication: ACUTE MYOCARDIAL INFARCTION
     Route: 048
     Dates: start: 20111220, end: 20111220
  2. PLAVIX [Suspect]
     Route: 048
     Dates: start: 20111220
  3. PLAVIX [Suspect]
     Route: 048
  4. ACETYLSALICYLIC ACID SRT [Concomitant]
     Route: 048
     Dates: start: 20111221
  5. ASPIRIN [Concomitant]
     Indication: ACUTE CORONARY SYNDROME
     Route: 048
     Dates: start: 20111220, end: 20111220

REACTIONS (4)
  - THROMBOSIS IN DEVICE [None]
  - OVERDOSE [None]
  - VENTRICULAR FIBRILLATION [None]
  - DRUG INEFFECTIVE [None]
